FAERS Safety Report 4992703-5 (Version None)
Quarter: 2006Q1

REPORT INFORMATION
  Report Type: 
  Country: None (occurrence: None)
  Receive Date: 20060313
  Receipt Date: 20060126
  Transmission Date: 20060701
  Serious: No
  Sender: FDA-Public Use
  Company Number: 2006-BP-00077BP

PATIENT
  Age: 58 Year
  Sex: Female

DRUGS (9)
  1. SPIRIVA [Suspect]
     Indication: CHRONIC OBSTRUCTIVE PULMONARY DISEASE
     Dosage: 18 MCG (18 MCG), IH
     Route: 055
     Dates: start: 20051223
  2. SPIRIVA [Suspect]
  3. ADVAIR (SERETIDE) [Concomitant]
  4. COMBIVENT (COMBIVENT / 01261001/) [Concomitant]
  5. DIOVAN [Concomitant]
  6. NORVASC [Concomitant]
  7. HYDROCHLOROTHIAZIDE [Concomitant]
  8. TRANZENE [Concomitant]
  9. VITAMINS [Concomitant]

REACTIONS (1)
  - DRUG INEFFECTIVE [None]
